FAERS Safety Report 10129896 (Version 2)
Quarter: 2014Q2

REPORT INFORMATION
  Report Type: Spontaneous
  Country: US (occurrence: US)
  Receive Date: 20140428
  Receipt Date: 20140613
  Transmission Date: 20141212
  Serious: No
  Sender: FDA-Public Use
  Company Number: US-PFIZER INC-2014110525

PATIENT
  Age: 56 Year
  Sex: Female
  Weight: 100.23 kg

DRUGS (2)
  1. REVATIO [Suspect]
     Indication: PULMONARY HYPERTENSION
     Dosage: 20 MG, 3X/DAY
     Dates: start: 2011
  2. REVATIO [Suspect]
     Dosage: 20 MG, 2X/DAY
     Dates: start: 201404

REACTIONS (3)
  - Drug withdrawal syndrome [Recovering/Resolving]
  - Palpitations [Recovering/Resolving]
  - Asthenia [Recovering/Resolving]
